FAERS Safety Report 21048982 (Version 2)
Quarter: 2022Q3

REPORT INFORMATION
  Report Type: Report from Study
  Country: CN (occurrence: CN)
  Receive Date: 20220706
  Receipt Date: 20220714
  Transmission Date: 20221026
  Serious: Yes (Hospitalization)
  Sender: FDA-Public Use
  Company Number: CN-ADC THERAPEUTICS SA-ADC-2022-000117

PATIENT
  Age: 68 Year
  Sex: Male

DRUGS (7)
  1. LONCASTUXIMAB TESIRINE [Suspect]
     Active Substance: LONCASTUXIMAB TESIRINE
     Indication: Diffuse large B-cell lymphoma refractory
     Dosage: 150 MICROGRAM/KILOGRAM, Q3WK
     Route: 042
     Dates: start: 20220427, end: 20220427
  2. LONCASTUXIMAB TESIRINE [Suspect]
     Active Substance: LONCASTUXIMAB TESIRINE
     Dosage: 75 MICROGRAM/KILOGRAM, Q3WK
     Route: 042
     Dates: start: 20220616
  3. AMLODIPINE BESYLATE [Concomitant]
     Active Substance: AMLODIPINE BESYLATE
     Indication: Blood pressure increased
     Dosage: 5 MILLIGRAM, QD
     Route: 048
     Dates: start: 202108
  4. ROSUVASTATIN CALCIUM [Concomitant]
     Active Substance: ROSUVASTATIN CALCIUM
     Indication: Thrombosis
     Dosage: 10 MILLIGRAM, QD
     Route: 048
     Dates: start: 202107
  5. ASPIRIN [Concomitant]
     Active Substance: ASPIRIN
     Indication: Thrombosis
     Dosage: 100 MILLIGRAM, QD
     Route: 048
     Dates: start: 202107
  6. PREGABALIN [Concomitant]
     Active Substance: PREGABALIN
     Indication: Analgesic therapy
     Dosage: 75 MILLIGRAM, BID
     Route: 048
     Dates: start: 20210612
  7. TRAMADOL HYDROCHLORIDE [Concomitant]
     Active Substance: TRAMADOL HYDROCHLORIDE
     Indication: Analgesic therapy
     Dosage: 0.1 GRAM, BID
     Route: 048
     Dates: start: 20210615

REACTIONS (1)
  - Hepatic function abnormal [Recovered/Resolved]

NARRATIVE: CASE EVENT DATE: 20220620
